FAERS Safety Report 14279763 (Version 2)
Quarter: 2017Q4

REPORT INFORMATION
  Report Type: Spontaneous
  Country: AU (occurrence: AU)
  Receive Date: 20171213
  Receipt Date: 20171221
  Transmission Date: 20180321
  Serious: Yes (Other)
  Sender: FDA-Public Use
  Company Number: AU-ORION CORPORATION ORION PHARMA-TREX2017-2946

PATIENT
  Age: 9 Year
  Sex: Female
  Weight: 32 kg

DRUGS (3)
  1. METHOTREXATE (TRADE NAME UNKNOWN) [Suspect]
     Active Substance: METHOTREXATE
     Indication: JUVENILE IDIOPATHIC ARTHRITIS
     Route: 048
     Dates: start: 201601
  2. PIROXICAM. [Concomitant]
     Active Substance: PIROXICAM
     Route: 048
  3. PREDNISOLONE. [Concomitant]
     Active Substance: PREDNISOLONE
     Route: 048

REACTIONS (7)
  - Drug ineffective for unapproved indication [Unknown]
  - Joint instability [Unknown]
  - Arthropathy [Unknown]
  - Hypermobility syndrome [Unknown]
  - Joint injury [Unknown]
  - Humerus fracture [Unknown]
  - Joint dislocation [Unknown]
